FAERS Safety Report 25970432 (Version 1)
Quarter: 2025Q4

REPORT INFORMATION
  Report Type: Spontaneous
  Country: US (occurrence: US)
  Receive Date: 20251028
  Receipt Date: 20251028
  Transmission Date: 20260117
  Serious: Yes (Hospitalization)
  Sender: Kenvue
  Company Number: US-KENVUE-20251008481

PATIENT
  Sex: Female

DRUGS (1)
  1. BENADRYL [Suspect]
     Active Substance: DIPHENHYDRAMINE HYDROCHLORIDE
     Indication: Hypersensitivity
     Dosage: 10 MILLILITER, ONCE A DAY, PRODUCT START DATE: APPROX 20 YEARS AGO
     Route: 065

REACTIONS (3)
  - Throat tightness [Recovering/Resolving]
  - Product administered to patient of inappropriate age [Unknown]
  - Allergic reaction to excipient [Recovering/Resolving]
